FAERS Safety Report 7554560-2 (Version None)
Quarter: 2011Q2

REPORT INFORMATION
  Report Type: 
  Country: None (occurrence: None)
  Receive Date: 20110614
  Receipt Date: 20110614
  Transmission Date: 20111010
  Serious: Yes (Hospitalization)
  Sender: FDA-Public Use
  Company Number: None

PATIENT
  Sex: Male
  Weight: 93.3 kg

DRUGS (9)
  1. ELIGARD [Concomitant]
  2. BESYLATE [Concomitant]
  3. FINASTERIDE [Concomitant]
  4. AMLODIPINE [Concomitant]
  5. BENZAPRIL HCL, [Concomitant]
  6. CARDURA [Concomitant]
  7. WARFARIN SODIUM [Concomitant]
  8. REVLIMID [Suspect]
     Dosage: 25 MG QD PO
     Route: 048
     Dates: start: 20101229, end: 20110517
  9. AVELOX [Concomitant]

REACTIONS (1)
  - HAEMATURIA [None]
